FAERS Safety Report 26086816 (Version 1)
Quarter: 2025Q4

REPORT INFORMATION
  Report Type: Spontaneous
  Country: US (occurrence: None)
  Receive Date: 20251124
  Receipt Date: 20251124
  Transmission Date: 20260118
  Serious: Yes (Life-Threatening)
  Sender: FDA-CTU
  Company Number: None

PATIENT
  Age: 58 Year
  Sex: Male
  Weight: 121.5 kg

DRUGS (19)
  1. PAROXETINE HYDROCHLORIDE [Suspect]
     Active Substance: PAROXETINE HYDROCHLORIDE
     Indication: Hot flush
     Dates: start: 20251013, end: 20251121
  2. FENTANYL TRANSDERMAL SYSTEM [Suspect]
     Active Substance: FENTANYL
     Indication: Cancer pain
     Dates: start: 20250926
  3. XTANDI [Concomitant]
     Active Substance: ENZALUTAMIDE
  4. ORGOVYX [Concomitant]
     Active Substance: RELUGOLIX
  5. MELOXICAM [Concomitant]
     Active Substance: MELOXICAM
  6. METHYLPREDNISOLONE [Concomitant]
     Active Substance: METHYLPREDNISOLONE
  7. ALLOPURINOL [Concomitant]
     Active Substance: ALLOPURINOL
  8. OMEPRAZOLE [Concomitant]
     Active Substance: OMEPRAZOLE
  9. METFORMIN [Concomitant]
     Active Substance: METFORMIN HYDROCHLORIDE
  10. OXYCODONE [Concomitant]
     Active Substance: OXYCODONE
  11. PAROXETINE [Concomitant]
     Active Substance: PAROXETINE
  12. FENTANYL [Concomitant]
     Active Substance: FENTANYL
  13. CETIRIZINE [Concomitant]
     Active Substance: CETIRIZINE HYDROCHLORIDE
  14. ZINC [Concomitant]
     Active Substance: ZINC
  15. MAGNESIUM [Concomitant]
     Active Substance: MAGNESIUM
  16. POTASSIUM GLUCONATE [Concomitant]
     Active Substance: POTASSIUM GLUCONATE
  17. CALCIUM\CHOLECALCIFEROL [Concomitant]
     Active Substance: CALCIUM\CHOLECALCIFEROL
  18. IRON [Concomitant]
     Active Substance: IRON
  19. B12 [Concomitant]

REACTIONS (8)
  - Overdose [None]
  - Dyspnoea [None]
  - Pain [None]
  - Headache [None]
  - Fatigue [None]
  - Hypersomnia [None]
  - Withdrawal syndrome [None]
  - Drug interaction [None]

NARRATIVE: CASE EVENT DATE: 20251117
